FAERS Safety Report 18753896 (Version 1)
Quarter: 2021Q1

REPORT INFORMATION
  Report Type: Spontaneous
  Country: US (occurrence: US)
  Receive Date: 20210119
  Receipt Date: 20210119
  Transmission Date: 20210419
  Serious: No
  Sender: FDA-Public Use
  Company Number: US-ASTRAZENECA-2020SF73673

PATIENT
  Sex: Male
  Weight: 70.3 kg

DRUGS (3)
  1. CORTICOSTEROID MEDICATIONS [Suspect]
     Active Substance: CORTICOSTEROID NOS
     Route: 065
  2. SYMBICORT [Suspect]
     Active Substance: BUDESONIDE\FORMOTEROL FUMARATE DIHYDRATE
     Indication: ASTHMA
     Dosage: 160 MCG TWO PUFFS BID
     Route: 055
  3. SYMBICORT [Suspect]
     Active Substance: BUDESONIDE\FORMOTEROL FUMARATE DIHYDRATE
     Indication: ASTHMA
     Dosage: 160 MCG TWO PUFFS BID
     Route: 055

REACTIONS (4)
  - Device use error [Unknown]
  - Product use issue [Unknown]
  - Product dispensing error [Unknown]
  - Dysphonia [Unknown]
